FAERS Safety Report 9664207 (Version 2)
Quarter: 2013Q4

REPORT INFORMATION
  Report Type: Spontaneous
  Country: PL (occurrence: PL)
  Receive Date: 20131101
  Receipt Date: 20131101
  Transmission Date: 20140711
  Serious: Yes (Other)
  Sender: FDA-Public Use
  Company Number: PL-JNJFOC-20131009358

PATIENT
  Sex: Male

DRUGS (5)
  1. VERMOX [Suspect]
     Indication: ASCARIASIS
     Route: 065
     Dates: start: 201309, end: 201310
  2. VERMOX [Suspect]
     Indication: ASCARIASIS
     Route: 065
     Dates: start: 201309, end: 201310
  3. ZENTEL [Concomitant]
     Indication: PRODUCT USED FOR UNKNOWN INDICATION
     Route: 065
  4. HELICID [Concomitant]
     Indication: PRODUCT USED FOR UNKNOWN INDICATION
     Route: 065
  5. COLON CARE( DIETARY FOOD SUPPLEMENT) [Concomitant]
     Indication: MEDICAL DIET
     Route: 065

REACTIONS (2)
  - Respiratory tract infection [Not Recovered/Not Resolved]
  - Drug ineffective [Not Recovered/Not Resolved]
